FAERS Safety Report 5180980-X (Version None)
Quarter: 2006Q4

REPORT INFORMATION
  Report Type: 
  Country: None (occurrence: None)
  Receive Date: 20061220
  Receipt Date: 20061206
  Transmission Date: 20070319
  Serious: Yes (Hospitalization)
  Sender: FDA-Public Use
  Company Number: PHRM2006FR03247

PATIENT
  Age: 79 Year
  Sex: Female
  Weight: 60 kg

DRUGS (10)
  1. TEGRETOL [Suspect]
     Dosage: 200 MG, QD
     Route: 048
     Dates: start: 20060504, end: 20060609
  2. VALSARTAN AND HYDROCHLOROTHIAZIDE [Concomitant]
     Indication: ESSENTIAL HYPERTENSION
     Dosage: 80 MG, QD
     Route: 048
     Dates: end: 20060615
  3. FUMAFER [Concomitant]
     Dosage: 200 MG, QD
     Route: 048
     Dates: start: 20060505
  4. MOTILIUM [Concomitant]
     Dosage: 15 MG, TID
     Route: 048
     Dates: start: 20060506, end: 20060608
  5. LAMALINE [Concomitant]
     Dosage: 1 DF, TID
     Route: 048
     Dates: start: 20040101, end: 20060610
  6. FORLAX [Concomitant]
     Dosage: 10 G, QD
     Route: 048
     Dates: start: 20060512, end: 20060608
  7. ZOLPIDEM TARTRATE [Concomitant]
     Dosage: 10 MG, QD
     Route: 048
  8. PARIET [Concomitant]
     Dosage: 10 MG, QD
     Route: 048
     Dates: start: 20040101, end: 20060610
  9. ACETAMINOPHEN [Concomitant]
     Dosage: 3 G/DAY
     Route: 048
     Dates: start: 20060508
  10. XALATAN [Concomitant]
     Dates: start: 20020101

REACTIONS (26)
  - ASTHENIA [None]
  - BIOPSY SKIN ABNORMAL [None]
  - BLOOD CULTURE POSITIVE [None]
  - BLOOD SODIUM DECREASED [None]
  - BODY TEMPERATURE INCREASED [None]
  - C-REACTIVE PROTEIN INCREASED [None]
  - CATHETER SEPSIS [None]
  - DRUG INEFFECTIVE [None]
  - DRUG RASH WITH EOSINOPHILIA AND SYSTEMIC SYMPTOMS [None]
  - DRY SKIN [None]
  - ENANTHEMA [None]
  - EOSINOPHIL COUNT INCREASED [None]
  - EOSINOPHILIA [None]
  - FLUID REPLACEMENT [None]
  - GAMMA-GLUTAMYLTRANSFERASE INCREASED [None]
  - LICHENOID KERATOSIS [None]
  - ODYNOPHAGIA [None]
  - OESOPHAGEAL DISORDER [None]
  - ORAL MUCOSAL DISORDER [None]
  - PRURITUS [None]
  - RASH MACULO-PAPULAR [None]
  - SKIN EXFOLIATION [None]
  - SKIN TEST POSITIVE [None]
  - STAPHYLOCOCCAL SEPSIS [None]
  - TOXIC SKIN ERUPTION [None]
  - XEROSIS [None]
